FAERS Safety Report 4937340-3 (Version None)
Quarter: 2006Q1

REPORT INFORMATION
  Report Type: 
  Country: None (occurrence: None)
  Receive Date: 20060309
  Receipt Date: 20060228
  Transmission Date: 20060701
  Serious: Yes (Hospitalization)
  Sender: FDA-Public Use
  Company Number: US-KINGPHARMUSA00001-K200600285

PATIENT
  Age: 18 Year
  Sex: Male

DRUGS (2)
  1. EPINEPHRINE [Suspect]
     Indication: SEPTIC SHOCK
     Dosage: 22 MG, (0.15 UG/KG/MIN)
     Route: 042
  2. EPINEPHRINE [Suspect]
     Dosage: FLUCTUATED 0.1-0.2 UG/KG, MIN
     Route: 042

REACTIONS (14)
  - ABDOMINAL PAIN [None]
  - BLOOD PRESSURE INCREASED [None]
  - CARDIAC ENZYMES INCREASED [None]
  - CHEST PAIN [None]
  - DEVICE MALFUNCTION [None]
  - ELECTROCARDIOGRAM ABNORMAL [None]
  - HEADACHE [None]
  - HEART RATE INCREASED [None]
  - INCORRECT DRUG ADMINISTRATION RATE [None]
  - MYOCARDIAL INFARCTION [None]
  - OVERDOSE [None]
  - OXYGEN SATURATION DECREASED [None]
  - PULMONARY OEDEMA [None]
  - RESPIRATORY RATE INCREASED [None]
